FAERS Safety Report 6568516-X (Version None)
Quarter: 2010Q1

REPORT INFORMATION
  Report Type: 
  Country: None (occurrence: None)
  Receive Date: 20100203
  Receipt Date: 20100128
  Transmission Date: 20100710
  Serious: Yes (Hospitalization)
  Sender: FDA-Public Use
  Company Number: US-BRISTOL-MYERS SQUIBB COMPANY-14945851

PATIENT
  Sex: Female

DRUGS (5)
  1. ONGLYZA [Suspect]
  2. METFORMIN HCL [Suspect]
  3. GLYBURIDE [Concomitant]
  4. CRESTOR [Concomitant]
  5. TRILIPIX [Concomitant]

REACTIONS (1)
  - MYOCARDIAL INFARCTION [None]
